FAERS Safety Report 15981006 (Version 1)
Quarter: 2019Q1

REPORT INFORMATION
  Report Type: Spontaneous
  Country: US (occurrence: US)
  Receive Date: 20190218
  Receipt Date: 20190218
  Transmission Date: 20190418
  Serious: Yes (Other)
  Sender: FDA-Public Use
  Company Number: None

PATIENT
  Age: 29 Year
  Sex: Female
  Weight: 63 kg

DRUGS (1)
  1. RITUXAN [Suspect]
     Active Substance: RITUXIMAB
     Dates: start: 20160615

REACTIONS (4)
  - Alopecia [None]
  - Cough [None]
  - Drug interaction [None]
  - Arthralgia [None]

NARRATIVE: CASE EVENT DATE: 20190212
